FAERS Safety Report 8402049-0 (Version None)
Quarter: 2012Q2

REPORT INFORMATION
  Report Type: 
  Country: None (occurrence: None)
  Receive Date: 20120601
  Receipt Date: 20120522
  Transmission Date: 20120825
  Serious: Yes (Hospitalization)
  Sender: FDA-Public Use
  Company Number: GB-ABBOTT-12P-167-0900532-00

PATIENT
  Sex: Female

DRUGS (1)
  1. HUMIRA [Suspect]
     Indication: ANKYLOSING SPONDYLITIS
     Route: 058
     Dates: start: 20111102

REACTIONS (7)
  - ALLERGIC RESPIRATORY SYMPTOM [None]
  - HEADACHE [None]
  - THROAT IRRITATION [None]
  - PYREXIA [None]
  - VIRAL INFECTION [None]
  - RASH [None]
  - ANAPHYLACTIC SHOCK [None]
